FAERS Safety Report 8048112-8 (Version None)
Quarter: 2012Q1

REPORT INFORMATION
  Report Type: 
  Country: None (occurrence: None)
  Receive Date: 20120112
  Receipt Date: 20120112
  Transmission Date: 20120608
  Serious: Yes (Hospitalization)
  Sender: FDA-Public Use
  Company Number: None

PATIENT
  Age: 46 Year
  Sex: Male
  Weight: 77.1 kg

DRUGS (8)
  1. MULTI-VITAMIN [Concomitant]
  2. XANAX [Concomitant]
  3. HYDROCODONE BITARTRATE AND ACETAMINOPHEN [Concomitant]
  4. ZOFRAN [Concomitant]
  5. ATIVAN [Concomitant]
  6. COMPAZINE [Concomitant]
  7. CARBOPLATIN [Suspect]
     Indication: NON-SMALL CELL LUNG CANCER
     Dosage: 300MG WEEKLY X6 WEEKS IV
     Route: 042
     Dates: start: 20111129
  8. PACLITAXEL [Suspect]
     Indication: NON-SMALL CELL LUNG CANCER
     Dosage: 88MG WEEKLY X6 WEEKS IV
     Route: 042
     Dates: start: 20111129

REACTIONS (4)
  - SINUSITIS [None]
  - HEADACHE [None]
  - PYREXIA [None]
  - CHILLS [None]
